FAERS Safety Report 9945507 (Version 1)
Quarter: 2014Q1

REPORT INFORMATION
  Report Type: Report from Study
  Country: US (occurrence: US)
  Receive Date: 20140303
  Receipt Date: 20140303
  Transmission Date: 20141002
  Serious: No
  Sender: FDA-Public Use
  Company Number: US-ABBVIE-13P-163-1049642-00

PATIENT
  Sex: Male
  Weight: 86.26 kg

DRUGS (2)
  1. HUMIRA [Suspect]
     Indication: APHTHOUS STOMATITIS
     Route: 058
     Dates: start: 2004
  2. HUMIRA [Suspect]

REACTIONS (2)
  - Off label use [Unknown]
  - Aphthous stomatitis [Recovered/Resolved]
